FAERS Safety Report 7397617-1 (Version None)
Quarter: 2011Q2

REPORT INFORMATION
  Report Type: 
  Country: None (occurrence: None)
  Receive Date: 20110406
  Receipt Date: 20110328
  Transmission Date: 20111010
  Serious: Yes (Other)
  Sender: FDA-Public Use
  Company Number: DE-TEVA-274595GER

PATIENT
  Age: 68 Year
  Sex: Male

DRUGS (1)
  1. FLUOROURACIL [Suspect]
     Indication: OPEN ANGLE GLAUCOMA
     Route: 057

REACTIONS (2)
  - GRAND MAL CONVULSION [None]
  - AMNESIA [None]
